FAERS Safety Report 11390009 (Version 1)
Quarter: 2015Q3

REPORT INFORMATION
  Report Type: Report from Study
  Country: US (occurrence: US)
  Receive Date: 20150818
  Receipt Date: 20150818
  Transmission Date: 20151125
  Serious: No
  Sender: FDA-Public Use
  Company Number: US-AMGEN-USASP2015082614

PATIENT
  Age: 65 Year
  Sex: Male

DRUGS (1)
  1. ENBREL [Suspect]
     Active Substance: ETANERCEPT
     Indication: PSORIATIC ARTHROPATHY
     Dosage: UNK UNK, 2 TIMES/WK
     Route: 065

REACTIONS (5)
  - Diarrhoea [Unknown]
  - Surgery [Unknown]
  - Hypoaesthesia [Recovering/Resolving]
  - Road traffic accident [Unknown]
  - Injection site pain [Unknown]
